FAERS Safety Report 21966468 (Version 4)
Quarter: 2023Q1

REPORT INFORMATION
  Report Type: Report from Study
  Country: US (occurrence: US)
  Receive Date: 20230208
  Receipt Date: 20230217
  Transmission Date: 20230418
  Serious: No
  Sender: FDA-Public Use
  Company Number: US-002147023-NVSC2023US023746

PATIENT
  Age: 51 Year
  Sex: Female
  Weight: 142.88 kg

DRUGS (4)
  1. COSENTYX [Suspect]
     Active Substance: SECUKINUMAB
     Indication: Psoriatic arthropathy
     Dosage: 300 MG, QMO
     Route: 058
     Dates: start: 20211206, end: 202203
  2. COSENTYX [Suspect]
     Active Substance: SECUKINUMAB
     Dosage: 300 MG/KG, QMO
     Route: 058
     Dates: start: 202203
  3. METHOTREXATE [Suspect]
     Active Substance: METHOTREXATE
     Indication: Psoriatic arthropathy
     Dosage: UNK
     Route: 065
  4. HYDROXYCHLOROQUINE [Suspect]
     Active Substance: HYDROXYCHLOROQUINE
     Indication: Psoriatic arthropathy
     Dosage: UNK
     Route: 065

REACTIONS (7)
  - Onychoclasis [Unknown]
  - Wound [Unknown]
  - Arthritis [Unknown]
  - Psoriasis [Unknown]
  - Infection [Unknown]
  - Product dose omission issue [Unknown]
  - Drug ineffective [Unknown]

NARRATIVE: CASE EVENT DATE: 20221101
